FAERS Safety Report 6234659-3 (Version None)
Quarter: 2009Q2

REPORT INFORMATION
  Report Type: 
  Country: None (occurrence: None)
  Receive Date: 20090616
  Receipt Date: 20090616
  Transmission Date: 20091009
  Serious: Yes (Other)
  Sender: FDA-Public Use
  Company Number: None

PATIENT
  Age: 55 Year
  Sex: Female
  Weight: 68.9467 kg

DRUGS (1)
  1. CEPHALEXIN [Suspect]
     Indication: LYMPHADENOPATHY
     Dosage: 500 MG 1 CAPSULE 3 TIMES PO
     Route: 048
     Dates: start: 20090611, end: 20090613

REACTIONS (7)
  - ERYTHEMA [None]
  - INFLAMMATION [None]
  - PRODUCT QUALITY ISSUE [None]
  - PRURITUS [None]
  - RASH MACULAR [None]
  - SKIN WARM [None]
  - URTICARIA [None]
